FAERS Safety Report 19026345 (Version 2)
Quarter: 2021Q1

REPORT INFORMATION
  Report Type: Spontaneous
  Country: CA (occurrence: CA)
  Receive Date: 20210318
  Receipt Date: 20210323
  Transmission Date: 20210420
  Serious: Yes (Other)
  Sender: FDA-Public Use
  Company Number: ALC2021CA002013

PATIENT

DRUGS (1)
  1. SYSTANE COMPLETE [Suspect]
     Active Substance: PROPYLENE GLYCOL
     Indication: DRY EYE
     Dosage: 1?2 DROPS IN EACH EYE
     Route: 047
     Dates: end: 20210308

REACTIONS (3)
  - Eye pain [Recovered/Resolved]
  - Expired product administered [Recovered/Resolved]
  - Product contamination microbial [Recovered/Resolved]

NARRATIVE: CASE EVENT DATE: 20210308
